FAERS Safety Report 9685265 (Version 2)
Quarter: 2013Q4

REPORT INFORMATION
  Report Type: Spontaneous
  Country: JP (occurrence: JP)
  Receive Date: 20131113
  Receipt Date: 20131219
  Transmission Date: 20140711
  Serious: Yes (Hospitalization)
  Sender: FDA-Public Use
  Company Number: JP-JNJFOC-20131106413

PATIENT
  Age: 60 Year
  Sex: Male

DRUGS (1)
  1. FINIBAX [Suspect]
     Indication: PANCREATITIS ACUTE
     Route: 041
     Dates: start: 201310

REACTIONS (1)
  - Platelet count increased [Not Recovered/Not Resolved]
